FAERS Safety Report 9366717 (Version 1)
Quarter: 2013Q2

REPORT INFORMATION
  Report Type: Report from Study
  Country: DE (occurrence: TR)
  Receive Date: 20130625
  Receipt Date: 20130625
  Transmission Date: 20140414
  Serious: Yes (Death)
  Sender: FDA-Public Use
  Company Number: DE-ACTELION-A-US2013-85006

PATIENT
  Age: 20 Year
  Sex: Male

DRUGS (1)
  1. VENTAVIS [Suspect]
     Indication: PRODUCT USED FOR UNKNOWN INDICATION
     Dosage: 1/2 DOSAGE, X9/DAY
     Route: 055
     Dates: start: 20130321

REACTIONS (4)
  - Death [Fatal]
  - Back pain [Unknown]
  - Fatigue [Unknown]
  - Oedema peripheral [Unknown]
